FAERS Safety Report 4639114-X (Version None)
Quarter: 2005Q2

REPORT INFORMATION
  Report Type: 
  Country: None (occurrence: None)
  Receive Date: 20050418
  Receipt Date: 20050405
  Transmission Date: 20051028
  Serious: Yes (Other)
  Sender: FDA-Public Use
  Company Number: 2005-01-0969

PATIENT
  Age: 59 Year
  Sex: Female
  Weight: 50 kg

DRUGS (2)
  1. CLARITIN [Suspect]
     Indication: PRURITUS
     Dosage: 10 MG ORAL
     Route: 048
     Dates: start: 20041111, end: 20050110
  2. HEPARIN SODIUM [Suspect]
     Indication: THROMBOCYTOPENIC PURPURA
     Dosage: 2000 UNITS

REACTIONS (2)
  - HAEMORRHAGE SUBCUTANEOUS [None]
  - THROMBOCYTOPENIC PURPURA [None]
